FAERS Safety Report 18319939 (Version 5)
Quarter: 2020Q4

REPORT INFORMATION
  Report Type: Spontaneous
  Country: US (occurrence: US)
  Receive Date: 20200929
  Receipt Date: 20201119
  Transmission Date: 20210113
  Serious: No
  Sender: FDA-Public Use
  Company Number: US-AMGEN-USASP2020156162

PATIENT
  Age: 71 Year
  Sex: Male

DRUGS (3)
  1. NEULASTA [Suspect]
     Active Substance: PEGFILGRASTIM
     Indication: LYMPHOMA
     Dosage: 6 MILLIGRAM (EVERY 20 DAYS)
     Route: 058
     Dates: start: 20200807
  2. NEULASTA [Suspect]
     Active Substance: PEGFILGRASTIM
     Indication: DIFFUSE LARGE B-CELL LYMPHOMA
     Dosage: 6 MILLIGRAM (EVERY 20 DAYS)
     Route: 058
     Dates: start: 20200807
  3. NEULASTA [Suspect]
     Active Substance: PEGFILGRASTIM
     Dosage: 6 MILLIGRAM (EVERY 20 DAYS)
     Route: 058
     Dates: start: 20200807

REACTIONS (2)
  - Device use error [Unknown]
  - Device failure [Unknown]

NARRATIVE: CASE EVENT DATE: 20200917
